FAERS Safety Report 24412259 (Version 5)
Quarter: 2024Q4

REPORT INFORMATION
  Report Type: Spontaneous
  Country: FR (occurrence: FR)
  Receive Date: 20241008
  Receipt Date: 20241107
  Transmission Date: 20250115
  Serious: Yes (Life-Threatening, Hospitalization, Other)
  Sender: PFIZER
  Company Number: FR-SERVIER-S24012047

PATIENT
  Age: 17 Year
  Sex: Male
  Weight: 76 kg

DRUGS (13)
  1. PANTOPRAZOLE [Suspect]
     Active Substance: PANTOPRAZOLE
     Dosage: 14 TABLETS
     Route: 048
  2. PANTOPRAZOLE [Suspect]
     Active Substance: PANTOPRAZOLE
     Dosage: UNK
     Route: 065
  3. DESLORATADINE [Suspect]
     Active Substance: DESLORATADINE
     Dosage: 15 TABLETS
     Route: 048
  4. ACETAMINOPHEN [Suspect]
     Active Substance: ACETAMINOPHEN
     Dosage: 16 TABLETS
     Route: 048
  5. ACETAMINOPHEN [Suspect]
     Active Substance: ACETAMINOPHEN
     Dosage: UNK
     Route: 065
  6. DICLOFENAC SODIUM [Suspect]
     Active Substance: DICLOFENAC SODIUM
     Dosage: 20 TABLETS
     Route: 048
  7. AMLODIPINE\PERINDOPRIL [Suspect]
     Active Substance: AMLODIPINE\PERINDOPRIL
     Dosage: 30 DF
     Route: 048
  8. ACETAMINOPHEN\CHLORPHENIRAMINE MALEATE\SODIUM ASCORBATE [Suspect]
     Active Substance: ACETAMINOPHEN\CHLORPHENIRAMINE MALEATE\SODIUM ASCORBATE
     Dosage: 6 TABLETS
     Route: 048
  9. ACETAMINOPHEN\CHLORPHENIRAMINE MALEATE\SODIUM ASCORBATE [Suspect]
     Active Substance: ACETAMINOPHEN\CHLORPHENIRAMINE MALEATE\SODIUM ASCORBATE
     Dosage: UNK
     Route: 065
  10. KETOPROFEN [Suspect]
     Active Substance: KETOPROFEN
     Dosage: 16 TABLETS
     Route: 048
  11. KETOPROFEN [Suspect]
     Active Substance: KETOPROFEN
     Dosage: UNK
     Route: 065
  12. METFORMIN\SITAGLIPTIN [Suspect]
     Active Substance: METFORMIN\SITAGLIPTIN
     Dosage: 15 TABLETS
     Route: 048
  13. METFORMIN\SITAGLIPTIN [Suspect]
     Active Substance: METFORMIN\SITAGLIPTIN
     Dosage: UNK
     Route: 065

REACTIONS (12)
  - Livedo reticularis [Recovered/Resolved]
  - Acute kidney injury [Recovered/Resolved]
  - Electrocardiogram T wave peaked [Recovered/Resolved]
  - Hypotension [Recovered/Resolved]
  - Hyperleukocytosis [Recovered/Resolved]
  - Heart rate increased [Recovered/Resolved]
  - Hyperkalaemia [Recovered/Resolved]
  - Vomiting [Recovered/Resolved]
  - Prothrombin time abnormal [Recovered/Resolved]
  - Toxicity to various agents [Recovered/Resolved]
  - Abdominal pain [Recovered/Resolved]
  - Intentional overdose [Unknown]
